FAERS Safety Report 25019706 (Version 2)
Quarter: 2025Q1

REPORT INFORMATION
  Report Type: Spontaneous
  Country: US (occurrence: US)
  Receive Date: 20250227
  Receipt Date: 20250328
  Transmission Date: 20250408
  Serious: Yes (Hospitalization, Other)
  Sender: GLAXOSMITHKLINE
  Company Number: US-GSK-US2025023602

PATIENT

DRUGS (1)
  1. BENLYSTA [Suspect]
     Active Substance: BELIMUMAB
     Indication: Systemic lupus erythematosus

REACTIONS (4)
  - Cholecystitis infective [Unknown]
  - Diarrhoea [Unknown]
  - Cholecystitis [Unknown]
  - Hiccups [Unknown]

NARRATIVE: CASE EVENT DATE: 20241101
